FAERS Safety Report 4645328-5 (Version None)
Quarter: 2005Q2

REPORT INFORMATION
  Report Type: 
  Country: None (occurrence: None)
  Receive Date: 20050331
  Receipt Date: 20041214
  Transmission Date: 20051028
  Serious: No
  Sender: FDA-Public Use
  Company Number: 04P-163-0283394-00

PATIENT
  Age: 34 Year
  Sex: Female
  Weight: 94.3482 kg

DRUGS (5)
  1. HUMIRA [Suspect]
     Indication: RHEUMATOID ARTHRITIS
     Dosage: 40 MG, 1 IN 2 WK, SUBCUTANEOUS
     Route: 058
     Dates: start: 20030601
  2. METHOTREXATE SODIUM [Concomitant]
  3. FOLIC ACID [Concomitant]
  4. MULTI-VITAMINS [Concomitant]
  5. MEDROXYPROGESTERONE ACETATE [Concomitant]

REACTIONS (1)
  - NASOPHARYNGITIS [None]
